FAERS Safety Report 5860597-1 (Version None)
Quarter: 2008Q3

REPORT INFORMATION
  Report Type: 
  Country: None (occurrence: None)
  Receive Date: 20080826
  Receipt Date: 20080818
  Transmission Date: 20090109
  Serious: Yes (Hospitalization)
  Sender: FDA-Public Use
  Company Number: 2008AL005886

PATIENT
  Age: 75 Year
  Sex: Female
  Weight: 80.2867 kg

DRUGS (9)
  1. DIGOXIN [Suspect]
     Indication: ATRIAL FIBRILLATION
     Dosage: 0.125MG DAILY PO
     Route: 048
     Dates: start: 20040101, end: 20080101
  2. VERAPAMIN [Concomitant]
  3. FLOVENT [Concomitant]
  4. LASIX [Concomitant]
  5. POTASSIUM CHLORIDE [Concomitant]
  6. VERAPAMIL CR [Concomitant]
  7. COUMADIN [Concomitant]
  8. PCL [Concomitant]
  9. PCP [Concomitant]

REACTIONS (6)
  - DIARRHOEA [None]
  - DIZZINESS [None]
  - EMPHYSEMA [None]
  - INFLUENZA [None]
  - LUNG INFECTION [None]
  - NAUSEA [None]
